FAERS Safety Report 8827900 (Version 3)
Quarter: 2012Q4

REPORT INFORMATION
  Report Type: 
  Country: GB (occurrence: GB)
  Receive Date: 20121005
  Receipt Date: 20121022
  Transmission Date: 20130627
  Serious: Yes (Death, Other)
  Sender: FDA-Public Use
  Company Number: GB-B.I. PHARMACEUTICALS,INC./RIDGEFIELD-2012-UK-01319UK

PATIENT
  Sex: Male

DRUGS (2)
  1. DABIGATRAN [Suspect]
     Indication: THROMBOSIS PROPHYLAXIS
     Dosage: 220 mg
     Route: 048
     Dates: start: 20120823, end: 20120828
  2. DABIGATRAN [Suspect]
     Dosage: 110 mg

REACTIONS (5)
  - Gastrointestinal haemorrhage [Fatal]
  - Haemarthrosis [Fatal]
  - Rectal haemorrhage [Fatal]
  - Renal failure acute [Fatal]
  - Urinary retention [Unknown]
